FAERS Safety Report 8202588-1 (Version None)
Quarter: 2012Q1

REPORT INFORMATION
  Report Type: 
  Country: None (occurrence: None)
  Receive Date: 20120312
  Receipt Date: 20120305
  Transmission Date: 20120608
  Serious: Yes (Other)
  Sender: FDA-Public Use
  Company Number: US-JNJFOC-20120303424

PATIENT
  Age: 47 Year
  Sex: Male
  Weight: 79.38 kg

DRUGS (3)
  1. UNKNOWN MEDICATION [Concomitant]
     Route: 065
  2. MINOXIDIL [Suspect]
     Route: 061
     Dates: start: 20111101
  3. MINOXIDIL [Suspect]
     Indication: HAIR GROWTH ABNORMAL
     Route: 061
     Dates: start: 20110301

REACTIONS (3)
  - AURICULAR SWELLING [None]
  - EYE SWELLING [None]
  - APPLICATION SITE RASH [None]
